FAERS Safety Report 4874923-3 (Version None)
Quarter: 2006Q1

REPORT INFORMATION
  Report Type: 
  Country: None (occurrence: None)
  Receive Date: 20060105
  Receipt Date: 20051223
  Transmission Date: 20060701
  Serious: Yes (Hospitalization)
  Sender: FDA-Public Use
  Company Number: US-2005-027824

PATIENT
  Age: 52 Year
  Sex: Female
  Weight: 45.4 kg

DRUGS (1)
  1. BETASERON [Suspect]
     Indication: MULTIPLE SCLEROSIS
     Dosage: 8 MIU, EVERY 2D, SUBCUTANEOUS
     Route: 058
     Dates: start: 20050211

REACTIONS (3)
  - DYSPNOEA EXERTIONAL [None]
  - MALNUTRITION [None]
  - SLEEP DISORDER [None]
